FAERS Safety Report 20804778 (Version 1)
Quarter: 2022Q2

REPORT INFORMATION
  Report Type: Spontaneous
  Country: US (occurrence: US)
  Receive Date: 20220509
  Receipt Date: 20220509
  Transmission Date: 20220720
  Serious: Yes (Other)
  Sender: FDA-Public Use
  Company Number: US-NOVOPROD-915493

PATIENT
  Age: 68 Year
  Sex: Female

DRUGS (1)
  1. OZEMPIC [Suspect]
     Active Substance: SEMAGLUTIDE
     Indication: Product used for unknown indication
     Dosage: 0.25 MG
     Route: 058
     Dates: start: 20220421

REACTIONS (9)
  - Fibromyalgia [Unknown]
  - Vision blurred [Unknown]
  - Disorientation [Unknown]
  - Headache [Unknown]
  - Abdominal distension [Unknown]
  - Nausea [Unknown]
  - Diarrhoea [Unknown]
  - Product label confusion [Unknown]
  - Wrong technique in device usage process [Unknown]

NARRATIVE: CASE EVENT DATE: 20220422
